FAERS Safety Report 8487758-X (Version None)
Quarter: 2012Q2

REPORT INFORMATION
  Report Type: 
  Country: None (occurrence: None)
  Receive Date: 20120402
  Receipt Date: 20100830
  Transmission Date: 20120825
  Serious: Yes (Other)
  Sender: FDA-Public Use
  Company Number: PHHY2010US57483

PATIENT
  Sex: Male

DRUGS (1)
  1. EXFORGE [Suspect]
     Dosage: 320/10 MG, UNK

REACTIONS (3)
  - DIZZINESS [None]
  - ATRIAL FIBRILLATION [None]
  - HYPOTENSION [None]
